FAERS Safety Report 24567981 (Version 1)
Quarter: 2024Q4

REPORT INFORMATION
  Report Type: Spontaneous
  Country: US (occurrence: US)
  Receive Date: 20241031
  Receipt Date: 20241031
  Transmission Date: 20250115
  Serious: Yes (Death, Other)
  Sender: AMGEN
  Company Number: US-AMGEN-USASP2024211051

PATIENT

DRUGS (5)
  1. RITUXIMAB [Suspect]
     Active Substance: RITUXIMAB
     Indication: Immune-mediated adverse reaction
     Dosage: UNK
     Route: 065
  2. INFLIXIMAB [Suspect]
     Active Substance: INFLIXIMAB
     Indication: Immune-mediated adverse reaction
     Dosage: UNK
     Route: 065
  3. PREDNISONE [Suspect]
     Active Substance: PREDNISONE
     Indication: Immune-mediated adverse reaction
     Dosage: UNK
     Route: 065
  4. IPILIMUMAB [Suspect]
     Active Substance: IPILIMUMAB
     Indication: Metastatic malignant melanoma
     Route: 065
  5. NIVOLUMAB [Suspect]
     Active Substance: NIVOLUMAB
     Indication: Metastatic malignant melanoma
     Route: 065

REACTIONS (24)
  - Death [Fatal]
  - Metastatic malignant melanoma [Unknown]
  - Hepatitis [Unknown]
  - Nephritis [Unknown]
  - Pancreatitis [Unknown]
  - Neuropathy peripheral [Unknown]
  - Systemic inflammatory response syndrome [Unknown]
  - Myocarditis [Unknown]
  - Musculoskeletal toxicity [Unknown]
  - Enterocolitis [Unknown]
  - Pneumonitis [Unknown]
  - Hepatotoxicity [Unknown]
  - Pulmonary toxicity [Unknown]
  - Nephropathy toxic [Unknown]
  - Colitis [Unknown]
  - Uveitis [Unknown]
  - Thrombocytopenia [Unknown]
  - Papillitis [Unknown]
  - Dermatitis [Unknown]
  - Endocrine toxicity [Unknown]
  - Gastrointestinal toxicity [Unknown]
  - Mental status changes [Unknown]
  - Dyspnoea [Unknown]
  - Fatigue [Unknown]
